FAERS Safety Report 24817448 (Version 1)
Quarter: 2025Q1

REPORT INFORMATION
  Report Type: Spontaneous
  Country: CN (occurrence: CN)
  Receive Date: 20250108
  Receipt Date: 20250108
  Transmission Date: 20250409
  Serious: Yes (Death)
  Sender: STRIDES
  Company Number: CN-STRIDES ARCOLAB LIMITED-2025SP000181

PATIENT
  Age: 60 Year
  Sex: Male

DRUGS (23)
  1. ETOPOSIDE [Suspect]
     Active Substance: ETOPOSIDE
     Indication: Small cell lung cancer
     Route: 048
  2. ETOPOSIDE [Suspect]
     Active Substance: ETOPOSIDE
     Indication: Cushing^s syndrome
  3. CARBOPLATIN [Suspect]
     Active Substance: CARBOPLATIN
     Indication: Small cell lung cancer
     Route: 042
  4. CARBOPLATIN [Suspect]
     Active Substance: CARBOPLATIN
     Indication: Cushing^s syndrome
     Route: 042
  5. DURVALUMAB [Suspect]
     Active Substance: DURVALUMAB
     Indication: Small cell lung cancer
     Route: 042
  6. DURVALUMAB [Suspect]
     Active Substance: DURVALUMAB
     Indication: Cushing^s syndrome
  7. IRINOTECAN [Suspect]
     Active Substance: IRINOTECAN
     Indication: Small cell lung cancer
     Route: 042
  8. IRINOTECAN [Suspect]
     Active Substance: IRINOTECAN
     Indication: Cushing^s syndrome
     Route: 042
  9. IRINOTECAN [Suspect]
     Active Substance: IRINOTECAN
     Route: 065
  10. IRINOTECAN [Suspect]
     Active Substance: IRINOTECAN
     Route: 065
  11. CISPLATIN [Suspect]
     Active Substance: CISPLATIN
     Indication: Small cell lung cancer
     Route: 042
  12. CISPLATIN [Suspect]
     Active Substance: CISPLATIN
     Indication: Cushing^s syndrome
     Route: 065
  13. CISPLATIN [Suspect]
     Active Substance: CISPLATIN
     Route: 065
  14. SERPLULIMAB [Suspect]
     Active Substance: SERPLULIMAB
     Indication: Small cell lung cancer
     Route: 042
  15. SERPLULIMAB [Suspect]
     Active Substance: SERPLULIMAB
     Indication: Cushing^s syndrome
     Route: 042
  16. SERPLULIMAB [Suspect]
     Active Substance: SERPLULIMAB
     Route: 065
  17. SERPLULIMAB [Suspect]
     Active Substance: SERPLULIMAB
     Route: 065
  18. CATEQUENTINIB [Suspect]
     Active Substance: CATEQUENTINIB
     Indication: Small cell lung cancer
     Route: 048
  19. CATEQUENTINIB [Suspect]
     Active Substance: CATEQUENTINIB
     Indication: Cushing^s syndrome
  20. BEVACIZUMAB [Suspect]
     Active Substance: BEVACIZUMAB
     Indication: Small cell lung cancer
     Route: 034
  21. BEVACIZUMAB [Suspect]
     Active Substance: BEVACIZUMAB
     Indication: Cushing^s syndrome
  22. TRILACICLIB [Concomitant]
     Active Substance: TRILACICLIB
     Indication: Myelosuppression
     Route: 065
  23. TRILACICLIB [Concomitant]
     Active Substance: TRILACICLIB
     Indication: Prophylaxis

REACTIONS (4)
  - Cardiac failure [Fatal]
  - Respiratory disorder [Fatal]
  - Myelosuppression [Fatal]
  - Off label use [Unknown]
